FAERS Safety Report 4510168-4 (Version None)
Quarter: 2004Q4

REPORT INFORMATION
  Report Type: 
  Country: None (occurrence: None)
  Receive Date: 20041124
  Receipt Date: 20030605
  Transmission Date: 20050328
  Serious: Yes (Hospitalization, Disabling, Other)
  Sender: FDA-Public Use
  Company Number: US-MERCK-0306USA00841

PATIENT
  Age: 57 Year
  Sex: Female

DRUGS (1)
  1. VIOXX [Suspect]
     Indication: ARTHRITIS
     Route: 048
     Dates: start: 20010101, end: 20010418

REACTIONS (55)
  - ADVERSE EVENT [None]
  - ALVEOLITIS FIBROSING [None]
  - ANXIETY [None]
  - ARTHRALGIA [None]
  - ARTHROPATHY [None]
  - BRONCHITIS [None]
  - BURSITIS [None]
  - CARDIAC FAILURE CONGESTIVE [None]
  - CAROTID ARTERY DISEASE [None]
  - CARPAL TUNNEL SYNDROME [None]
  - CHEST PAIN [None]
  - CHRONIC OBSTRUCTIVE AIRWAYS DISEASE [None]
  - COGNITIVE DISORDER [None]
  - COLLAGEN-VASCULAR DISEASE [None]
  - DEPRESSION [None]
  - DERMATOMYOSITIS [None]
  - DIARRHOEA [None]
  - DIVERTICULUM [None]
  - DIZZINESS [None]
  - DRUG ERUPTION [None]
  - DYSPHASIA [None]
  - DYSPNOEA [None]
  - FIBROMYALGIA [None]
  - GASTRITIS [None]
  - GASTROINTESTINAL MOTILITY DISORDER [None]
  - GASTROOESOPHAGEAL REFLUX DISEASE [None]
  - HAEMOPTYSIS [None]
  - HAEMORRHOIDS [None]
  - HYPERSENSITIVITY [None]
  - HYPERTENSION [None]
  - INSOMNIA [None]
  - INTERSTITIAL LUNG DISEASE [None]
  - IRRITABLE BOWEL SYNDROME [None]
  - MALAISE [None]
  - MEMORY IMPAIRMENT [None]
  - MUSCLE CRAMP [None]
  - MUSCULOSKELETAL STIFFNESS [None]
  - NEUROPATHY PERIPHERAL [None]
  - OBSESSIVE-COMPULSIVE DISORDER [None]
  - OBSTRUCTIVE AIRWAYS DISORDER [None]
  - OESOPHAGEAL CANDIDIASIS [None]
  - PAIN [None]
  - PAIN IN EXTREMITY [None]
  - PARAESTHESIA [None]
  - POLYMYOSITIS [None]
  - PULMONARY FIBROSIS [None]
  - PULMONARY OEDEMA [None]
  - RASH [None]
  - RASH MACULAR [None]
  - RASH PRURITIC [None]
  - RHEUMATOID ARTHRITIS [None]
  - TENDON INJURY [None]
  - VISION BLURRED [None]
  - VISUAL FIELD DEFECT [None]
  - WEIGHT DECREASED [None]
